FAERS Safety Report 10044556 (Version 1)
Quarter: 2014Q1

REPORT INFORMATION
  Report Type: Spontaneous
  Country: US (occurrence: US)
  Receive Date: 20140328
  Receipt Date: 20140328
  Transmission Date: 20141002
  Serious: Yes (Hospitalization)
  Sender: FDA-Public Use
  Company Number: US-PFIZER INC-2014087169

PATIENT
  Age: 71 Year
  Sex: Male
  Weight: 90.7 kg

DRUGS (1)
  1. LEVOTHYROXINE SODIUM [Suspect]
     Indication: HYPOTHYROIDISM
     Dosage: 75 UG, 1X/DAY
     Dates: start: 2009

REACTIONS (3)
  - Malaise [Unknown]
  - Chest pain [Unknown]
  - Dyspnoea [Unknown]
